FAERS Safety Report 8792191 (Version 2)
Quarter: 2015Q1

REPORT INFORMATION
  Report Type: Report from Study
  Country: US (occurrence: US)
  Receive Date: 20120918
  Receipt Date: 20150210
  Transmission Date: 20150721
  Serious: Yes (Death, Hospitalization)
  Sender: FDA-Public Use
  Company Number: US-ROCHE-1128642

PATIENT
  Sex: Male
  Weight: 64.7 kg

DRUGS (30)
  1. FLUVIRIN (UNITED STATES) [Concomitant]
     Route: 030
     Dates: start: 20091015
  2. DIPHENHYDRAMINE HCL [Concomitant]
     Active Substance: DIPHENHYDRAMINE HYDROCHLORIDE
     Route: 065
     Dates: start: 20081121
  3. ADVAIR DISKUS [Concomitant]
     Active Substance: FLUTICASONE PROPIONATE\SALMETEROL XINAFOATE
     Route: 065
  4. CLINDAGEL [Concomitant]
     Active Substance: CLINDAMYCIN PHOSPHATE
     Route: 061
  5. VP-16 [Concomitant]
     Active Substance: ETOPOSIDE
     Route: 042
     Dates: start: 20090520
  6. NAVELBINE [Concomitant]
     Active Substance: VINORELBINE TARTRATE
     Route: 042
     Dates: start: 20090423
  7. DILAUDID [Concomitant]
     Active Substance: HYDROMORPHONE HYDROCHLORIDE
  8. AVASTIN [Suspect]
     Active Substance: BEVACIZUMAB
     Indication: LUNG NEOPLASM MALIGNANT
     Dosage: 30/OCT/2009, 13/NOV/2009
     Route: 042
     Dates: start: 20091016
  9. TARCEVA [Suspect]
     Active Substance: ERLOTINIB HYDROCHLORIDE
     Indication: PRODUCT USED FOR UNKNOWN INDICATION
     Route: 048
     Dates: start: 20091203
  10. ACETAMINOPHEN/HYDROCODONE [Concomitant]
     Active Substance: ACETAMINOPHEN\HYDROCODONE
     Route: 048
     Dates: end: 20090930
  11. PEGFILGRASTIM [Suspect]
     Active Substance: PEGFILGRASTIM
     Indication: PRODUCT USED FOR UNKNOWN INDICATION
     Route: 065
     Dates: start: 20090101, end: 20090723
  12. ALDACTONE (UNITED STATES) [Concomitant]
     Route: 048
  13. GEMZAR [Concomitant]
     Active Substance: GEMCITABINE HYDROCHLORIDE
     Route: 042
     Dates: start: 20091016
  14. PACLITAXEL. [Concomitant]
     Active Substance: PACLITAXEL
     Route: 042
     Dates: start: 20091016
  15. DILAUDID [Concomitant]
     Active Substance: HYDROMORPHONE HYDROCHLORIDE
     Dosage: PRN
     Route: 048
     Dates: start: 20090608
  16. LORAZEPAM. [Concomitant]
     Active Substance: LORAZEPAM
     Route: 042
     Dates: start: 20090128
  17. TAXOL [Concomitant]
     Active Substance: PACLITAXEL
     Route: 042
  18. PNEUMOVAX 23 [Concomitant]
     Active Substance: PNEUMOCOCCAL VACCINE, POLYVALENT 23
     Route: 065
     Dates: start: 20091113, end: 20091113
  19. FENTANYL. [Concomitant]
     Active Substance: FENTANYL
     Route: 065
     Dates: start: 20090827
  20. TETRACYCLINE HCL [Concomitant]
     Active Substance: TETRACYCLINE HYDROCHLORIDE
     Route: 048
  21. CARBOPLATIN. [Concomitant]
     Active Substance: CARBOPLATIN
     Route: 042
     Dates: start: 20081121
  22. TAXOTERE [Concomitant]
     Active Substance: DOCETAXEL
     Route: 042
     Dates: start: 20081121
  23. CISPLATIN. [Concomitant]
     Active Substance: CISPLATIN
     Route: 042
     Dates: start: 20090520
  24. LASIX [Concomitant]
     Active Substance: FUROSEMIDE
     Route: 048
  25. SIMVASTIN [Concomitant]
     Active Substance: SIMVASTATIN
     Route: 048
  26. DARVOCET-N 100 [Concomitant]
     Active Substance: ACETAMINOPHEN\PROPOXYPHENE NAPSYLATE
     Dosage: 100-650 MG
     Route: 048
     Dates: start: 20090501, end: 20090608
  27. NAPROXEN. [Suspect]
     Active Substance: NAPROXEN
     Indication: PRODUCT USED FOR UNKNOWN INDICATION
     Route: 048
     Dates: end: 20090930
  28. ALOXI [Concomitant]
     Active Substance: PALONOSETRON HYDROCHLORIDE
     Route: 042
     Dates: start: 20081121
  29. MARINOL (UNITED STATES) [Concomitant]
     Route: 065
     Dates: start: 20091211
  30. MEGACE ES [Concomitant]
     Active Substance: MEGESTROL ACETATE
     Route: 048

REACTIONS (13)
  - Back pain [Unknown]
  - Lung carcinoma cell type unspecified recurrent [Unknown]
  - Deep vein thrombosis [Unknown]
  - Wheezing [Unknown]
  - Cough [Unknown]
  - Weight decreased [Unknown]
  - Hypoxia [Unknown]
  - Death [Fatal]
  - Decreased appetite [Unknown]
  - Rib fracture [Unknown]
  - Pneumonia [Unknown]
  - Chest pain [Unknown]
  - Disease progression [Unknown]
